FAERS Safety Report 4698085-0 (Version None)
Quarter: 2005Q2

REPORT INFORMATION
  Report Type: 
  Country: None (occurrence: None)
  Receive Date: 20050621
  Receipt Date: 20050608
  Transmission Date: 20051028
  Serious: Yes (Hospitalization, Disabling)
  Sender: FDA-Public Use
  Company Number: 214931

PATIENT
  Age: 41 Year
  Sex: Male
  Weight: 81.8 kg

DRUGS (1)
  1. RAPTIVA [Suspect]
     Indication: PSORIASIS
     Dosage: 80 MG, 1/WEEK, SUBCUTANEOUS
     Route: 058
     Dates: start: 20050410

REACTIONS (7)
  - ABASIA [None]
  - ARTHRALGIA [None]
  - BACK PAIN [None]
  - BLOOD SODIUM DECREASED [None]
  - PYREXIA [None]
  - SHOULDER PAIN [None]
  - WHITE BLOOD CELL COUNT INCREASED [None]
